FAERS Safety Report 4850696-5 (Version None)
Quarter: 2005Q4

REPORT INFORMATION
  Report Type: 
  Country: None (occurrence: None)
  Receive Date: 20051208
  Receipt Date: 20051208
  Transmission Date: 20060501
  Serious: No
  Sender: FDA-Public Use
  Company Number: None

PATIENT
  Age: 79 Year
  Sex: Male
  Weight: 70 kg

DRUGS (6)
  1. ZOFRAN [Suspect]
     Indication: VOMITING
     Dosage: 4 MG ONCE IV DRIP
     Route: 041
     Dates: start: 20051206, end: 20051206
  2. TRIMETHOBENZAMIDE  200MG  G+W LABS [Suspect]
     Indication: VOMITING
     Dosage: 200MG Q6H RECTAL
     Route: 054
     Dates: start: 20051204, end: 20051207
  3. CARVEDILOL [Concomitant]
  4. PANTOPRAZOLE [Concomitant]
  5. ENOXAPARIN SODIUM [Concomitant]
  6. CILOSTAZOL [Concomitant]

REACTIONS (6)
  - BLOOD POTASSIUM DECREASED [None]
  - CARDIAC FAILURE CONGESTIVE [None]
  - DRUG INTOLERANCE [None]
  - ELECTROCARDIOGRAM QT CORRECTED INTERVAL PROLONGED [None]
  - LOSS OF CONSCIOUSNESS [None]
  - VENTRICULAR EXTRASYSTOLES [None]
